FAERS Safety Report 5053986-9 (Version None)
Quarter: 2006Q3

REPORT INFORMATION
  Report Type: 
  Country: None (occurrence: None)
  Receive Date: 20060713
  Receipt Date: 20060626
  Transmission Date: 20061208
  Serious: Yes (Hospitalization, Disabling)
  Sender: FDA-Public Use
  Company Number: 2006RR-02850

PATIENT
  Age: 49 Year
  Sex: Male

DRUGS (9)
  1. SIMVASTATIN FAMILY (SIMVASTATIN) TABLET, 10MG [Suspect]
     Indication: HYPERCHOLESTEROLAEMIA
     Dosage: 10 MG, QD, ORAL
     Route: 048
     Dates: start: 20010201
  2. FLUCONAZOLE FAMILY (FLUCONAZOLE) TABLET, 100MG [Suspect]
     Indication: PNEUMOCYSTIS JIROVECI PNEUMONIA
     Dosage: 100 MG, QD, ORAL
     Route: 048
  3. ALLOPURINOL ORAL FAMILY (ALLOPURINOL) TABLET [Concomitant]
  4. AMLODIPINE [Concomitant]
  5. MECOBALAMIN [Concomitant]
  6. SUCRALFATE [Concomitant]
  7. SANILVUDINE [Concomitant]
  8. LAMIVUDINE [Concomitant]
  9. NELFINAVIR (NELFINAVIR) [Concomitant]

REACTIONS (7)
  - DRUG INTERACTION [None]
  - HAEMODIALYSIS [None]
  - MALAISE [None]
  - MUSCULAR WEAKNESS [None]
  - PYREXIA [None]
  - RENAL IMPAIRMENT [None]
  - RHABDOMYOLYSIS [None]
